FAERS Safety Report 7704291-0 (Version None)
Quarter: 2011Q3

REPORT INFORMATION
  Report Type: 
  Country: None (occurrence: None)
  Receive Date: 20110823
  Receipt Date: 20110817
  Transmission Date: 20111222
  Serious: Yes (Other)
  Sender: FDA-Public Use
  Company Number: PHHY2011GR73726

PATIENT
  Sex: Male

DRUGS (1)
  1. EXJADE [Suspect]
     Indication: THALASSAEMIA
     Dosage: 30 MG/KG (4X500 MG), UNK
     Dates: start: 20071001

REACTIONS (3)
  - CALCULUS BLADDER [None]
  - RENAL COLIC [None]
  - HAEMATURIA [None]
